FAERS Safety Report 20211525 (Version 1)
Quarter: 2021Q4

REPORT INFORMATION
  Report Type: Spontaneous
  Country: US (occurrence: None)
  Receive Date: 20211220
  Receipt Date: 20211220
  Transmission Date: 20220303
  Serious: No
  Sender: FDA-Public Use
  Company Number: None

PATIENT
  Age: 37 Year
  Sex: Female
  Weight: 57.6 kg

DRUGS (1)
  1. BUPROPION [Suspect]
     Active Substance: BUPROPION
     Indication: Premenstrual dysphoric disorder
     Dosage: OTHER QUANTITY : 1 TABLET(S);?
     Route: 048
     Dates: start: 20211111, end: 20211208

REACTIONS (8)
  - Thinking abnormal [None]
  - Manufacturing issue [None]
  - Alopecia [None]
  - Fatigue [None]
  - Depression [None]
  - Lethargy [None]
  - Anxiety [None]
  - Pain of skin [None]
